FAERS Safety Report 5419593-0 (Version None)
Quarter: 2007Q3

REPORT INFORMATION
  Report Type: 
  Country: None (occurrence: None)
  Receive Date: 20070820
  Receipt Date: 20070807
  Transmission Date: 20080115
  Serious: Yes (Hospitalization)
  Sender: FDA-Public Use
  Company Number: GB-BAUSCH-2007BL002749

PATIENT
  Age: 28 Year
  Sex: Female

DRUGS (11)
  1. ALBUTEROL SULFATE [Suspect]
     Indication: ASTHMA
     Route: 049
  2. TERBUTALINE SULFATE [Concomitant]
  3. FLUTICASONE PROPIONATE [Concomitant]
  4. FORMOTEROL FUMARATE [Concomitant]
     Route: 002
  5. PREDNISOLONE [Concomitant]
  6. VERAPAMIL [Concomitant]
  7. MAGNESIUM SULFATE [Concomitant]
  8. OXYGEN [Concomitant]
     Route: 045
  9. SODIUM CHLORIDE [Concomitant]
     Route: 042
  10. AMINOPHYLLINE [Concomitant]
     Route: 042
  11. HYDROCORTISONE [Concomitant]
     Route: 042

REACTIONS (1)
  - HYPERLACTACIDAEMIA [None]
